FAERS Safety Report 9337858 (Version 3)
Quarter: 2014Q3

REPORT INFORMATION
  Report Type: Report from Study
  Country: US (occurrence: US)
  Receive Date: 20130607
  Receipt Date: 20140811
  Transmission Date: 20150326
  Serious: Yes (Life-Threatening, Hospitalization)
  Sender: FDA-Public Use
  Company Number: US-SANOFI-AVENTIS-2013SA056668

PATIENT
  Age: 54 Year
  Sex: Male
  Weight: 69 kg

DRUGS (11)
  1. ERYTHROMYCIN. [Concomitant]
     Active Substance: ERYTHROMYCIN
     Route: 048
  2. PROCHLORPERAZINE. [Concomitant]
     Active Substance: PROCHLORPERAZINE
     Route: 048
  3. DEXAMETHASONE. [Concomitant]
     Active Substance: DEXAMETHASONE
     Route: 048
  4. LORAZEPAM. [Concomitant]
     Active Substance: LORAZEPAM
     Route: 048
  5. ZYPREXA [Concomitant]
     Active Substance: OLANZAPINE
  6. CABAZITAXEL [Suspect]
     Active Substance: CABAZITAXEL
     Indication: GASTRIC CANCER
     Dosage: FREQUENCY: Q3W
     Route: 042
     Dates: start: 20130529, end: 20130529
  7. LOVENOX [Concomitant]
     Active Substance: ENOXAPARIN SODIUM
     Route: 058
  8. REMERON [Concomitant]
     Active Substance: MIRTAZAPINE
     Route: 048
  9. CABAZITAXEL [Suspect]
     Active Substance: CABAZITAXEL
     Indication: GASTRIC CANCER
     Dosage: FREQUENCY: Q3W
     Route: 042
     Dates: start: 20130618, end: 20130618
  10. ZOFRAN [Concomitant]
     Active Substance: ONDANSETRON HYDROCHLORIDE
     Dosage: 2 TABLETS
  11. REGLAN [Concomitant]
     Active Substance: METOCLOPRAMIDE HYDROCHLORIDE
     Route: 048

REACTIONS (3)
  - Neutrophil count decreased [Unknown]
  - White blood cell count decreased [Unknown]
  - Upper gastrointestinal haemorrhage [Recovered/Resolved]

NARRATIVE: CASE EVENT DATE: 20130603
